FAERS Safety Report 8889459 (Version 2)
Quarter: 2012Q4

REPORT INFORMATION
  Report Type: Spontaneous
  Country: DE (occurrence: None)
  Receive Date: 20121031
  Receipt Date: 20121116
  Transmission Date: 20130627
  Serious: Yes (Death)
  Sender: FDA-Public Use
  Company Number: ACO_32666_2012

PATIENT
  Age: 59 Year
  Sex: Male

DRUGS (4)
  1. FAMPYRA [Suspect]
     Indication: GAIT DISTURBANCE
     Route: 048
     Dates: start: 20111020
  2. AMANTADINE (AMANTADINE HYDROCHLORIDE) [Concomitant]
  3. TOLPERISONE (TOLPERISONE) [Concomitant]
  4. MIRTAZAPINE (MIRTAZAPINE) [Concomitant]

REACTIONS (1)
  - Death [None]
